FAERS Safety Report 20551193 (Version 2)
Quarter: 2022Q2

REPORT INFORMATION
  Report Type: Spontaneous
  Country: JP (occurrence: JP)
  Receive Date: 20220304
  Receipt Date: 20220419
  Transmission Date: 20220721
  Serious: Yes (Other)
  Sender: FDA-Public Use
  Company Number: JP-ALVOGEN-2022-ALVOGEN-118414

PATIENT
  Age: 89 Year
  Sex: Male

DRUGS (1)
  1. ATENOLOL [Suspect]
     Active Substance: ATENOLOL
     Indication: Product used for unknown indication
     Route: 048
     Dates: start: 201906

REACTIONS (3)
  - Creatinine renal clearance decreased [Unknown]
  - Blood pressure inadequately controlled [Recovered/Resolved]
  - Renal impairment [Recovered/Resolved]
